FAERS Safety Report 19284800 (Version 1)
Quarter: 2021Q2

REPORT INFORMATION
  Report Type: Spontaneous
  Country: BR (occurrence: BR)
  Receive Date: 20210521
  Receipt Date: 20210521
  Transmission Date: 20210717
  Serious: Yes (Other)
  Sender: FDA-Public Use
  Company Number: BR-ASTRAZENECA-2021A437589

PATIENT
  Sex: Female

DRUGS (3)
  1. VITAMIN D [Concomitant]
     Active Substance: VITAMIN D NOS
     Route: 065
  2. TAGRISSO [Suspect]
     Active Substance: OSIMERTINIB
     Indication: BRONCHIAL CARCINOMA
     Dosage: 80 MG, EVERY DAY, AT 7 PM
     Route: 048
     Dates: start: 20200529
  3. TAGRISSO [Suspect]
     Active Substance: OSIMERTINIB
     Indication: LUNG NEOPLASM
     Dosage: 80 MG, EVERY DAY, AT 7 PM
     Route: 048
     Dates: start: 20200529

REACTIONS (9)
  - Diarrhoea [Not Recovered/Not Resolved]
  - Urinary tract infection [Unknown]
  - Nail infection [Not Recovered/Not Resolved]
  - Abdominal pain [Not Recovered/Not Resolved]
  - Excessive granulation tissue [Recovered/Resolved]
  - Erythema [Unknown]
  - Haemorrhoids [Not Recovered/Not Resolved]
  - Haemorrhage [Unknown]
  - Onychomadesis [Not Recovered/Not Resolved]
